FAERS Safety Report 8708861 (Version 2)
Quarter: 2012Q4

REPORT INFORMATION
  Report Type: Report from Study
  Country: JP (occurrence: JP)
  Receive Date: 20120806
  Receipt Date: 20121019
  Transmission Date: 20130627
  Serious: Yes (Hospitalization)
  Sender: FDA-Public Use
  Company Number: JP-ROCHE-1094675

PATIENT
  Age: 69 Year
  Sex: Female
  Weight: 44 kg

DRUGS (21)
  1. OMALIZUMAB [Suspect]
     Indication: ASTHMA
     Route: 058
     Dates: start: 20111128
  2. OMALIZUMAB [Suspect]
     Route: 058
     Dates: start: 20120312
  3. OMALIZUMAB [Suspect]
     Route: 058
     Dates: start: 20120409
  4. OMALIZUMAB [Suspect]
     Route: 058
     Dates: start: 20120507
  5. SYMBICORT [Concomitant]
     Route: 065
     Dates: start: 20110922
  6. ADVAIR [Concomitant]
     Route: 065
     Dates: start: 20110921
  7. FLUTIDE [Concomitant]
     Route: 065
     Dates: start: 20110922
  8. HOKUNALIN [Concomitant]
  9. SINGULAIR [Concomitant]
  10. PREDONINE [Concomitant]
  11. VENTOLIN [Concomitant]
  12. SIGMART [Concomitant]
  13. CEREKINON [Concomitant]
  14. GASTER [Concomitant]
  15. FLUNASE [Concomitant]
  16. FOSAMAX [Concomitant]
  17. MUCOSTA [Concomitant]
  18. METHYCOBAL [Concomitant]
  19. MAGLAX [Concomitant]
  20. MUCOTRON [Concomitant]
  21. DILTIAZEM HYDROCHLORIDE [Concomitant]

REACTIONS (1)
  - Bronchitis [Recovering/Resolving]
